FAERS Safety Report 4989693-8 (Version None)
Quarter: 2006Q2

REPORT INFORMATION
  Report Type: 
  Country: None (occurrence: None)
  Receive Date: 20060501
  Receipt Date: 20060419
  Transmission Date: 20061013
  Serious: Yes (Other)
  Sender: FDA-Public Use
  Company Number: 2006PV012252

PATIENT
  Age: 56 Year
  Sex: Female
  Weight: 97.977 kg

DRUGS (9)
  1. BYETTA [Suspect]
     Indication: DIABETES MELLITUS NON-INSULIN-DEPENDENT
     Dosage: 5 MCG;BID;SC
     Route: 058
     Dates: start: 20050601
  2. FACTIVE [Suspect]
     Indication: URINARY TRACT INFECTION
     Dates: start: 20050901, end: 20050901
  3. METFORMIN [Concomitant]
  4. XANAX [Concomitant]
  5. ASPIRIN [Concomitant]
  6. AVAPRO [Concomitant]
  7. CRANBERRY PILL [Concomitant]
  8. ZETIA [Suspect]
  9. MACROBID [Suspect]
     Indication: URINARY TRACT INFECTION
     Dates: start: 20051001, end: 20051001

REACTIONS (11)
  - DECREASED APPETITE [None]
  - DRUG HYPERSENSITIVITY [None]
  - DYSPNOEA [None]
  - HEADACHE [None]
  - LEUKOCYTOCLASTIC VASCULITIS [None]
  - NAUSEA [None]
  - RASH [None]
  - URINARY TRACT INFECTION [None]
  - VIRAL INFECTION [None]
  - WEIGHT DECREASED [None]
  - WHITE BLOOD CELL COUNT INCREASED [None]
